FAERS Safety Report 8188958-9 (Version None)
Quarter: 2012Q1

REPORT INFORMATION
  Report Type: 
  Country: None (occurrence: None)
  Receive Date: 20120306
  Receipt Date: 20120224
  Transmission Date: 20120608
  Serious: Yes (Other)
  Sender: FDA-Public Use
  Company Number: PHHY2012FR018936

PATIENT
  Age: 80 Year
  Sex: Male

DRUGS (1)
  1. OSLIF BREEZHALER [Suspect]
     Indication: CHRONIC OBSTRUCTIVE PULMONARY DISEASE

REACTIONS (4)
  - STOMATITIS [None]
  - BRONCHOSPASM [None]
  - GLOSSITIS [None]
  - UPPER RESPIRATORY TRACT INFLAMMATION [None]
